FAERS Safety Report 10501534 (Version 1)
Quarter: 2014Q4

REPORT INFORMATION
  Report Type: Spontaneous
  Country: US (occurrence: None)
  Receive Date: 20141006
  Receipt Date: 20141006
  Transmission Date: 20150528
  Serious: Yes (Hospitalization)
  Sender: FDA-Public Use
  Company Number: None

PATIENT
  Age: 46 Year
  Sex: Male

DRUGS (2)
  1. SOVALDI [Suspect]
     Active Substance: SOFOSBUVIR
     Indication: HEPATITIS C
     Route: 048
     Dates: start: 20140425, end: 20140620
  2. RIBAVIRIN. [Suspect]
     Active Substance: RIBAVIRIN
     Indication: HEPATITIS C
     Route: 048
     Dates: start: 20140425, end: 20140620

REACTIONS (8)
  - Muscular weakness [None]
  - Cerebrovascular accident [None]
  - Myocardial infarction [None]
  - Blindness [None]
  - Lethargy [None]
  - Pyrexia [None]
  - Nervous system disorder [None]
  - Laboratory test abnormal [None]

NARRATIVE: CASE EVENT DATE: 20140620
